FAERS Safety Report 14116434 (Version 2)
Quarter: 2018Q4

REPORT INFORMATION
  Report Type: Spontaneous
  Country: US (occurrence: US)
  Receive Date: 20171023
  Receipt Date: 20181023
  Transmission Date: 20190204
  Serious: Yes (Other)
  Sender: FDA-Public Use
  Company Number: US-NAPPMUNDI-USA-2017-0138961

PATIENT
  Sex: Male

DRUGS (3)
  1. OXYCONTIN [Suspect]
     Active Substance: OXYCODONE HYDROCHLORIDE
     Indication: DRUG ABUSE
     Dosage: UNK
     Route: 048
  2. OXYCONTIN [Suspect]
     Active Substance: OXYCODONE HYDROCHLORIDE
     Indication: INJURY
  3. ALCOHOL. [Suspect]
     Active Substance: ALCOHOL
     Indication: SUBSTANCE DEPENDENCE
     Dosage: UNK
     Route: 048

REACTIONS (4)
  - Substance dependence [Recovering/Resolving]
  - Substance abuse [Recovering/Resolving]
  - Dysarthria [Unknown]
  - Drug dependence [Recovering/Resolving]
